FAERS Safety Report 4608665-6 (Version None)
Quarter: 2005Q1

REPORT INFORMATION
  Report Type: 
  Country: None (occurrence: None)
  Receive Date: 20050315
  Receipt Date: 20050222
  Transmission Date: 20050727
  Serious: Yes (Hospitalization)
  Sender: FDA-Public Use
  Company Number: AT-MERCK-0502AUT00015

PATIENT
  Age: 74 Year
  Sex: Female

DRUGS (6)
  1. ZETIA [Suspect]
     Indication: HYPERCHOLESTEROLAEMIA
     Route: 048
     Dates: start: 20050201, end: 20050212
  2. ZETIA [Suspect]
     Route: 048
     Dates: start: 20050218, end: 20050218
  3. FLUVASTATIN SODIUM [Suspect]
     Indication: HYPERCHOLESTEROLAEMIA
     Route: 048
     Dates: start: 20050201, end: 20050212
  4. FLUVASTATIN SODIUM [Suspect]
     Route: 048
     Dates: start: 20050218, end: 20050218
  5. [THERAPY UNSPECIFIED] [Concomitant]
     Indication: DIABETES MELLITUS
     Route: 065
  6. [THERAPY UNSPECIFIED] [Concomitant]
     Indication: HYPERTENSION
     Route: 065

REACTIONS (4)
  - DIARRHOEA [None]
  - HEPATITIS TOXIC [None]
  - NAUSEA [None]
  - VOMITING [None]
